FAERS Safety Report 6030750-5 (Version None)
Quarter: 2009Q1

REPORT INFORMATION
  Report Type: 
  Country: None (occurrence: None)
  Receive Date: 20090106
  Receipt Date: 20081228
  Transmission Date: 20090719
  Serious: Yes (Hospitalization)
  Sender: FDA-Public Use
  Company Number: 1000003370

PATIENT
  Age: 20 Year
  Sex: Male
  Weight: 80 kg

DRUGS (1)
  1. ESCITALOPRAM OXALATE [Suspect]
     Dosage: 40 MG (40 MG, ONCE), ORAL : 20 MG (20 MG, 1 IN 1 D), ORAL
     Route: 048
     Dates: start: 20081228, end: 20081228

REACTIONS (7)
  - ACCIDENTAL OVERDOSE [None]
  - CONFUSIONAL STATE [None]
  - DIARRHOEA [None]
  - HEADACHE [None]
  - SKIN BURNING SENSATION [None]
  - TEARFULNESS [None]
  - VOMITING [None]
